FAERS Safety Report 12921425 (Version 1)
Quarter: 2016Q4

REPORT INFORMATION
  Report Type: Spontaneous
  Country: JP (occurrence: JP)
  Receive Date: 20161108
  Receipt Date: 20161108
  Transmission Date: 20170207
  Serious: Yes (Other)
  Sender: FDA-Public Use
  Company Number: JP-PFIZER INC-2016475310

PATIENT
  Age: 80 Year
  Sex: Male
  Weight: 50 kg

DRUGS (2)
  1. VFEND [Suspect]
     Active Substance: VORICONAZOLE
     Indication: ASPERGILLUS INFECTION
     Dosage: 300 MG, 2X/DAY
     Route: 048
     Dates: start: 20160803, end: 20160803
  2. VFEND [Suspect]
     Active Substance: VORICONAZOLE
     Dosage: 200 MG, 2X/DAY
     Route: 048
     Dates: start: 20160804, end: 20160809

REACTIONS (4)
  - Drug level increased [Unknown]
  - Photophobia [Unknown]
  - Interstitial lung disease [Recovering/Resolving]
  - Hepatic function abnormal [Recovering/Resolving]

NARRATIVE: CASE EVENT DATE: 201608
